FAERS Safety Report 10954543 (Version 1)
Quarter: 2015Q1

REPORT INFORMATION
  Report Type: Spontaneous
  Country: US (occurrence: US)
  Receive Date: 20150325
  Receipt Date: 20150325
  Transmission Date: 20150721
  Serious: No
  Sender: FDA-Public Use
  Company Number: US-GLAXOSMITHKLINE-US2015036149

PATIENT
  Age: 79 Year
  Sex: Female

DRUGS (4)
  1. ROBITUSSIN (GUAIFENESIN) [Concomitant]
     Active Substance: GUAIFENESIN
  2. BREO ELLIPTA [Suspect]
     Active Substance: FLUTICASONE FUROATE\VILANTEROL TRIFENATATE
     Indication: COUGH
  3. BREO ELLIPTA [Suspect]
     Active Substance: FLUTICASONE FUROATE\VILANTEROL TRIFENATATE
     Indication: VIRAL INFECTION
     Dosage: 1 PUFF(S), QD
     Route: 055
     Dates: start: 20150316
  4. TESSALON [Concomitant]
     Active Substance: BENZONATATE

REACTIONS (3)
  - Off label use [Unknown]
  - Oral pain [Recovering/Resolving]
  - Productive cough [Recovering/Resolving]

NARRATIVE: CASE EVENT DATE: 20150316
